FAERS Safety Report 6740143-0 (Version None)
Quarter: 2010Q2

REPORT INFORMATION
  Report Type: 
  Country: None (occurrence: None)
  Receive Date: 20100525
  Receipt Date: 20100517
  Transmission Date: 20101027
  Serious: Yes (Hospitalization)
  Sender: FDA-Public Use
  Company Number: A0774066A

PATIENT
  Age: 69 Year
  Sex: Female

DRUGS (1)
  1. AVANDIA [Suspect]
     Indication: TYPE 2 DIABETES MELLITUS
     Route: 048
     Dates: start: 20010721, end: 20070628

REACTIONS (6)
  - CEREBROVASCULAR ACCIDENT [None]
  - DIABETIC COMPLICATION [None]
  - FATIGUE [None]
  - LIFE EXPECTANCY SHORTENED [None]
  - MULTIPLE INJURIES [None]
  - MYOCARDIAL INFARCTION [None]
